FAERS Safety Report 6261206-2 (Version None)
Quarter: 2009Q3

REPORT INFORMATION
  Report Type: 
  Country: None (occurrence: None)
  Receive Date: 20090709
  Receipt Date: 20080902
  Transmission Date: 20100115
  Serious: No
  Sender: FDA-Public Use
  Company Number: US-KINGPHARMUSA00001-K200801040

PATIENT
  Sex: Female
  Weight: 61.678 kg

DRUGS (4)
  1. LEVOXYL [Suspect]
     Indication: AUTOIMMUNE THYROIDITIS
     Dosage: 100 MCG, QD
     Route: 048
     Dates: start: 19930101
  2. LEVOXYL [Suspect]
     Dosage: 50 MCG, QW
     Route: 048
     Dates: start: 19930101
  3. PROGESTERONE [Concomitant]
     Indication: MENOPAUSAL SYMPTOMS
     Dates: start: 20080501, end: 20080801
  4. DECONGESTANT [Concomitant]
     Indication: NASOPHARYNGITIS
     Dosage: UNK, PRN

REACTIONS (3)
  - ANXIETY [None]
  - HEART RATE INCREASED [None]
  - INSOMNIA [None]
